FAERS Safety Report 4931384-3 (Version None)
Quarter: 2006Q1

REPORT INFORMATION
  Report Type: 
  Country: None (occurrence: None)
  Receive Date: 20060303
  Receipt Date: 20060220
  Transmission Date: 20060701
  Serious: Yes (Other)
  Sender: FDA-Public Use
  Company Number: PHEH2006US02363

PATIENT
  Sex: Female

DRUGS (3)
  1. ZOMETA [Suspect]
     Indication: BREAST CANCER METASTATIC
  2. CHEMOTHERAPEUTICS,OTHER [Concomitant]
  3. STEROIDS NOS [Concomitant]

REACTIONS (2)
  - ORAL SURGERY [None]
  - OSTEONECROSIS [None]
